FAERS Safety Report 4962175-5 (Version None)
Quarter: 2006Q2

REPORT INFORMATION
  Report Type: 
  Country: None (occurrence: None)
  Receive Date: 20060404
  Receipt Date: 20060314
  Transmission Date: 20061013
  Serious: Yes (Other)
  Sender: FDA-Public Use
  Company Number: PHEH2006US03437

PATIENT

DRUGS (1)
  1. MIOCHOL-E [Suspect]
     Dosage: UNK, ONCE/SINGLE

REACTIONS (2)
  - ENDOPHTHALMITIS [None]
  - SWELLING [None]
